FAERS Safety Report 8724281 (Version 2)
Quarter: 2012Q4

REPORT INFORMATION
  Report Type: 
  Country: FR (occurrence: FR)
  Receive Date: 20120815
  Receipt Date: 20121012
  Transmission Date: 20130627
  Serious: Yes (Hospitalization)
  Sender: FDA-Public Use
  Company Number: FR-ASTRAZENECA-2012SE56473

PATIENT
  Age: 73 Year
  Sex: Male

DRUGS (15)
  1. TENORMINE [Suspect]
     Route: 048
     Dates: start: 20120707, end: 20120711
  2. PARACETAMOL [Suspect]
     Route: 048
     Dates: start: 20120711, end: 20120717
  3. TIENAM 500MG/500MG, POUDRE POUR PERFUSION [Suspect]
     Route: 042
     Dates: start: 20120704, end: 20120707
  4. CIFLOX [Suspect]
     Route: 042
     Dates: start: 20120711, end: 20120723
  5. PLAVIX [Suspect]
     Route: 048
     Dates: start: 20120707, end: 20120723
  6. ACUPAN [Suspect]
     Route: 042
     Dates: start: 20120714, end: 20120724
  7. OFLOCET [Suspect]
     Route: 042
     Dates: start: 20120709, end: 20120711
  8. INIPOMP [Suspect]
     Route: 048
     Dates: start: 20120707, end: 20120711
  9. TAZOCILLINE [Suspect]
     Route: 042
     Dates: start: 20120709, end: 20120713
  10. LASILIX [Concomitant]
  11. CORDARONE [Concomitant]
  12. LOVENOX [Concomitant]
  13. NICOBION [Concomitant]
  14. NOVORAPID [Concomitant]
     Route: 058
     Dates: start: 20120711
  15. JOSIR [Concomitant]

REACTIONS (1)
  - Leukocytoclastic vasculitis [Recovered/Resolved]
